FAERS Safety Report 17274719 (Version 1)
Quarter: 2020Q1

REPORT INFORMATION
  Report Type: Spontaneous
  Country: FR (occurrence: FR)
  Receive Date: 20200115
  Receipt Date: 20200115
  Transmission Date: 20200409
  Serious: Yes (Death, Other)
  Sender: FDA-Public Use
  Company Number: FR-ROCHE-2515492

PATIENT
  Age: 88 Year
  Sex: Female
  Weight: 46.5 kg

DRUGS (14)
  1. AMOXICILLINE [AMOXICILLIN] [Concomitant]
     Active Substance: AMOXICILLIN
  2. VALIUM [Suspect]
     Active Substance: DIAZEPAM
     Indication: CATATONIA
     Route: 042
     Dates: start: 20191129, end: 20191203
  3. VITAMINE B12 [Concomitant]
     Active Substance: CYANOCOBALAMIN
  4. POLYIONIQUE [Concomitant]
  5. OGASTORO [Concomitant]
     Active Substance: LANSOPRAZOLE
  6. DIFFU K [Concomitant]
     Active Substance: POTASSIUM CHLORIDE
  7. ALPRAZOLAM. [Concomitant]
     Active Substance: ALPRAZOLAM
  8. VALIUM [Suspect]
     Active Substance: DIAZEPAM
     Indication: CATATONIA
     Route: 042
     Dates: start: 20191127, end: 20191129
  9. CITALOPRAM [Suspect]
     Active Substance: CITALOPRAM HYDROBROMIDE
     Indication: CATATONIA
     Route: 042
     Dates: start: 20191129, end: 20191203
  10. NOVORAPID [Concomitant]
     Active Substance: INSULIN ASPART
  11. ZOLPIDEM [Concomitant]
     Active Substance: ZOLPIDEM TARTRATE
  12. LORAZEPAM. [Concomitant]
     Active Substance: LORAZEPAM
  13. LOVENOX [Concomitant]
     Active Substance: ENOXAPARIN SODIUM
  14. MIRTAZAPINE. [Concomitant]
     Active Substance: MIRTAZAPINE

REACTIONS (4)
  - Oxygen saturation decreased [Recovered/Resolved]
  - Hypothermia [Fatal]
  - Hypoventilation [Recovered/Resolved]
  - Hyponatraemia [Recovering/Resolving]

NARRATIVE: CASE EVENT DATE: 20191127
